FAERS Safety Report 6814508-2 (Version None)
Quarter: 2010Q2

REPORT INFORMATION
  Report Type: 
  Country: None (occurrence: None)
  Receive Date: 20100629
  Receipt Date: 20100621
  Transmission Date: 20101027
  Serious: Yes (Death)
  Sender: FDA-Public Use
  Company Number: 2010060052

PATIENT
  Age: 62 Year
  Sex: Male

DRUGS (1)
  1. ONSOLIS [Suspect]
     Indication: CANCER PAIN
     Dosage: (200 MCG,1 FILM EVERY 2 HOURS PRN), BU
     Route: 002
     Dates: start: 20100521

REACTIONS (1)
  - DEATH [None]
